FAERS Safety Report 13611899 (Version 1)
Quarter: 2017Q2

REPORT INFORMATION
  Report Type: Spontaneous
  Country: US (occurrence: US)
  Receive Date: 20170605
  Receipt Date: 20170605
  Transmission Date: 20170830
  Serious: No
  Sender: FDA-Public Use
  Company Number: None

PATIENT
  Age: 34 Year
  Sex: Female
  Weight: 108 kg

DRUGS (8)
  1. ? [Suspect]
     Active Substance: UNSPECIFIED INGREDIENT
  2. CERAVE SKIN RENEWING DAY CREAM WITH BROAD SPECTRUM SPF 30 SUNSCREEN [Suspect]
     Active Substance: OCTINOXATE\ZINC OXIDE
     Indication: DRY SKIN PROPHYLAXIS
     Dates: start: 20170515, end: 20170602
  3. BUDESONIDE. [Concomitant]
     Active Substance: BUDESONIDE
  4. NUEDEXTA [Concomitant]
     Active Substance: DEXTROMETHORPHAN HYDROBROMIDE\QUINIDINE SULFATE
  5. ZOLOFT [Concomitant]
     Active Substance: SERTRALINE HYDROCHLORIDE
  6. DAILY WOMEN^S MULTIVITAMIN [Concomitant]
  7. CERAVE SKIN RENEWING DAY CREAM WITH BROAD SPECTRUM SPF 30 SUNSCREEN [Suspect]
     Active Substance: OCTINOXATE\ZINC OXIDE
     Indication: PROPHYLAXIS AGAINST SOLAR RADIATION
     Dates: start: 20170515, end: 20170602
  8. VYVANSE [Concomitant]
     Active Substance: LISDEXAMFETAMINE DIMESYLATE

REACTIONS (1)
  - Application site pain [None]

NARRATIVE: CASE EVENT DATE: 20170602
